FAERS Safety Report 8541134-X (Version None)
Quarter: 2012Q3

REPORT INFORMATION
  Report Type: 
  Country: None (occurrence: None)
  Receive Date: 20120726
  Receipt Date: 20110819
  Transmission Date: 20120928
  Serious: No
  Sender: FDA-Public Use
  Company Number: US-ASTRAZENECA-2011SE49875

PATIENT
  Age: 40 Year
  Sex: Female

DRUGS (2)
  1. TRILAFON [Concomitant]
  2. SEROQUEL [Suspect]
     Route: 048

REACTIONS (6)
  - CHILLS [None]
  - DIARRHOEA [None]
  - SLUGGISHNESS [None]
  - MALAISE [None]
  - FEELING ABNORMAL [None]
  - DRUG DOSE OMISSION [None]
